FAERS Safety Report 23342698 (Version 1)
Quarter: 2023Q4

REPORT INFORMATION
  Report Type: Spontaneous
  Country: US (occurrence: None)
  Receive Date: 20231226
  Receipt Date: 20231226
  Transmission Date: 20240110
  Serious: Yes (Hospitalization)
  Sender: FDA-Public Use
  Company Number: None

PATIENT
  Sex: Female

DRUGS (2)
  1. ICATIBANT ACETATE [Suspect]
     Active Substance: ICATIBANT ACETATE
     Indication: Complement factor abnormal
     Dosage: FREQUENCY : AS DIRECTED;?
     Route: 058
     Dates: start: 202307
  2. TAKZYRO PFS [Concomitant]

REACTIONS (2)
  - Abdominal distension [None]
  - Unevaluable event [None]
